FAERS Safety Report 13869827 (Version 2)
Quarter: 2017Q4

REPORT INFORMATION
  Report Type: Spontaneous
  Country: AU (occurrence: AU)
  Receive Date: 20170815
  Receipt Date: 20171002
  Transmission Date: 20180320
  Serious: Yes (Other)
  Sender: FDA-Public Use
  Company Number: AU-ALEXION PHARMACEUTICALS INC.-A201709100

PATIENT
  Age: 26 Year
  Sex: Male
  Weight: 130 kg

DRUGS (4)
  1. HEPARIN [Concomitant]
     Active Substance: HEPARIN SODIUM
     Indication: PORTAL VEIN THROMBOSIS
     Dosage: UNK
     Route: 065
  2. LPV [Concomitant]
     Indication: PROPHYLAXIS
     Dosage: UNK
     Route: 065
  3. PROPRANOLOL [Concomitant]
     Active Substance: PROPRANOLOL HYDROCHLORIDE
     Indication: PORTAL HYPERTENSIVE GASTROPATHY
     Dosage: UNK
     Route: 065
  4. SOLIRIS [Suspect]
     Active Substance: ECULIZUMAB
     Indication: PAROXYSMAL NOCTURNAL HAEMOGLOBINURIA
     Dosage: UNK
     Route: 042
     Dates: start: 20150703

REACTIONS (4)
  - Portal vein occlusion [Unknown]
  - Splenomegaly [Unknown]
  - Portal hypertension [Unknown]
  - Portal vein cavernous transformation [Unknown]

NARRATIVE: CASE EVENT DATE: 201706
